FAERS Safety Report 24324571 (Version 3)
Quarter: 2025Q3

REPORT INFORMATION
  Report Type: Spontaneous
  Country: EU (occurrence: EU)
  Receive Date: 20240916
  Receipt Date: 20250809
  Transmission Date: 20251021
  Serious: Yes (Other)
  Sender: ALEXION PHARMACEUTICALS
  Company Number: 2024A207425

PATIENT
  Age: 76 Year
  Sex: Female

DRUGS (4)
  1. ANASTROZOLE [Suspect]
     Active Substance: ANASTROZOLE
     Indication: Breast cancer female
     Dosage: 1 MILLIGRAM, QD
  2. VINORELBINE [Suspect]
     Active Substance: VINORELBINE TARTRATE
     Indication: Breast cancer female
  3. CAPECITABINE [Concomitant]
     Active Substance: CAPECITABINE
  4. BLEOMYCIN [Concomitant]
     Active Substance: BLEOMYCIN SULFATE

REACTIONS (2)
  - Malignant neoplasm progression [Unknown]
  - Carbohydrate antigen 15-3 increased [Unknown]
